FAERS Safety Report 4570898-5 (Version None)
Quarter: 2005Q1

REPORT INFORMATION
  Report Type: 
  Country: None (occurrence: None)
  Receive Date: 20050204
  Receipt Date: 20050201
  Transmission Date: 20050727
  Serious: Yes (Hospitalization)
  Sender: FDA-Public Use
  Company Number: NO-MERCK-0502NOR00005

PATIENT
  Age: 77 Year
  Sex: Female

DRUGS (4)
  1. FOSAMAX [Suspect]
     Route: 065
     Dates: end: 20050101
  2. RANITIDINE HYDROCHLORIDE [Concomitant]
     Indication: REFLUX OESOPHAGITIS
     Route: 065
  3. PREDNISOLONE [Suspect]
     Route: 065
     Dates: end: 20050101
  4. ASPIRIN [Suspect]
     Indication: FEMORAL NECK FRACTURE
     Route: 065
     Dates: end: 20050101

REACTIONS (3)
  - ANAEMIA [None]
  - MELAENA [None]
  - OESOPHAGEAL ULCER [None]
